FAERS Safety Report 7558886-8 (Version None)
Quarter: 2011Q2

REPORT INFORMATION
  Report Type: 
  Country: None (occurrence: None)
  Receive Date: 20110613
  Receipt Date: 20110531
  Transmission Date: 20111010
  Serious: Yes (Disabling)
  Sender: FDA-Public Use
  Company Number: DSJ-2011-06389

PATIENT
  Age: 82 Year
  Sex: Female
  Weight: 42.2 kg

DRUGS (8)
  1. MICARDIS [Concomitant]
  2. LIVALO (ITAVASTATIN CALCIUM) (ITAVASTATIN CALCIUM) [Concomitant]
  3. OLMESARTAN MEDOXOMIL [Suspect]
     Indication: ESSENTIAL HYPERTENSION
     Dosage: 20 MG, PER ORAL
     Route: 048
     Dates: start: 20100918, end: 20101016
  4. SUNRYTHM (PILSICAINIDE HYDROCHLORIDE) (PILSICAINIDE HYDROCHLORIDE) [Concomitant]
  5. DIOVAN [Concomitant]
  6. EPADEL S (ETHYL ICOSAPENTATE) (ETHYL ICOSAPENTATE) [Concomitant]
  7. MICAMLO AP [TELMISARTAN/AMLODIPINE BESILATE] (TABLET) [Concomitant]
  8. ATELEC (CILNIDIPINE) (CILNIDIPINE) [Concomitant]

REACTIONS (2)
  - NAUSEA [None]
  - GASTROINTESTINAL DISORDER [None]
